FAERS Safety Report 18215328 (Version 1)
Quarter: 2020Q3

REPORT INFORMATION
  Report Type: Spontaneous
  Country: US (occurrence: US)
  Receive Date: 20200901
  Receipt Date: 20200901
  Transmission Date: 20201103
  Serious: No
  Sender: FDA-Public Use
  Company Number: US-BIOGEN-2020BI00916726

PATIENT
  Sex: Female

DRUGS (1)
  1. TECFIDERA [Suspect]
     Active Substance: DIMETHYL FUMARATE
     Indication: MULTIPLE SCLEROSIS
     Dosage: PATIENT TAKING 240MG BY MOUTH TWICE DAILY.
     Route: 048
     Dates: start: 20191112

REACTIONS (3)
  - Muscular weakness [Unknown]
  - Emotional disorder [Unknown]
  - Product dose omission issue [Unknown]
